FAERS Safety Report 21499635 (Version 1)
Quarter: 2022Q4

REPORT INFORMATION
  Report Type: Spontaneous
  Country: US (occurrence: US)
  Receive Date: 20221024
  Receipt Date: 20221024
  Transmission Date: 20230113
  Serious: No
  Sender: FDA-Public Use
  Company Number: US-MYLANLABS-2022M1113719

PATIENT
  Sex: Male
  Weight: 120 kg

DRUGS (1)
  1. SEMGLEE (INSULIN GLARGINE-YFGN) [Suspect]
     Active Substance: INSULIN GLARGINE-YFGN
     Indication: Type 2 diabetes mellitus
     Dosage: 70 INTERNATIONAL UNIT
     Route: 058

REACTIONS (2)
  - Lipohypertrophy [Unknown]
  - Device mechanical issue [Unknown]
